FAERS Safety Report 4702225-4 (Version None)
Quarter: 2005Q2

REPORT INFORMATION
  Report Type: 
  Country: None (occurrence: None)
  Receive Date: 20050627
  Receipt Date: 20050610
  Transmission Date: 20051028
  Serious: Yes (Hospitalization)
  Sender: FDA-Public Use
  Company Number: 2005-00637

PATIENT
  Age: 58 Year
  Sex: Female
  Weight: 94.1 kg

DRUGS (15)
  1. INTEGRILIN [Suspect]
     Indication: CORONARY ANGIOPLASTY
     Dosage: SEE IMAGE
     Route: 041
     Dates: start: 20050208, end: 20050208
  2. INTEGRILIN [Suspect]
     Indication: CORONARY ANGIOPLASTY
     Dosage: SEE IMAGE
     Route: 041
     Dates: start: 20050208, end: 20050209
  3. HEPARIN [Suspect]
     Indication: CORONARY ANGIOPLASTY
     Dosage: SEE IMAGE
     Route: 041
     Dates: start: 20050207, end: 20050207
  4. TOPROL XL         (METOPROLOL SUCCINATE0 [Concomitant]
  5. NORVASC [Concomitant]
  6. ASPIRIN [Concomitant]
  7. LIPITOR [Concomitant]
  8. CLONIDINE [Concomitant]
  9. PLAVIX [Concomitant]
  10. LANTUS [Concomitant]
  11. NOVOLOG [Concomitant]
  12. IMDUR [Concomitant]
  13. LISINOPRIL [Concomitant]
  14. NTG (GLYCERYL TRINITRATE) [Concomitant]
  15. PRILOSEC [Concomitant]

REACTIONS (9)
  - ASTHENIA [None]
  - ESCHERICHIA INFECTION [None]
  - GROIN ABSCESS [None]
  - HYPOAESTHESIA [None]
  - PLATELET COUNT INCREASED [None]
  - POST PROCEDURAL HAEMATOMA [None]
  - POST PROCEDURAL HAEMORRHAGE [None]
  - RESPIRATORY RATE INCREASED [None]
  - VASCULAR PSEUDOANEURYSM [None]
